FAERS Safety Report 7351342-1 (Version None)
Quarter: 2011Q1

REPORT INFORMATION
  Report Type: 
  Country: None (occurrence: None)
  Receive Date: 20110314
  Receipt Date: 20110228
  Transmission Date: 20110831
  Serious: Yes (Other)
  Sender: FDA-Public Use
  Company Number: PHHY2011JP16413

PATIENT
  Age: 73 Year
  Sex: Female

DRUGS (5)
  1. KAKKON-TO [Suspect]
     Dosage: 25 DF, DAILY
     Route: 048
     Dates: end: 20110214
  2. NEUQUINON [Suspect]
     Dosage: 25 DF, DAILY
     Route: 048
     Dates: end: 20110214
  3. DIOVAN [Suspect]
     Indication: HYPERTENSION
     Dosage: 40 MG,DAILY
     Route: 048
     Dates: end: 20110214
  4. ASPIRIN [Suspect]
     Dosage: 100 DF, DAILY
     Route: 048
     Dates: end: 20110214
  5. LUVOX [Suspect]
     Dosage: 10 DF, DAILY
     Dates: end: 20110214

REACTIONS (1)
  - WHITE BLOOD CELL COUNT DECREASED [None]
